FAERS Safety Report 16116467 (Version 1)
Quarter: 2019Q1

REPORT INFORMATION
  Report Type: Spontaneous
  Country: US (occurrence: US)
  Receive Date: 20190220
  Receipt Date: 20190220
  Transmission Date: 20190418
  Serious: Yes (Life-Threatening)
  Sender: FDA-Public Use
  Company Number: None

PATIENT
  Age: 36 Year
  Sex: Female
  Weight: 99 kg

DRUGS (3)
  1. CEPHALEXIN. [Suspect]
     Active Substance: CEPHALEXIN
     Indication: UPPER RESPIRATORY TRACT INFECTION
     Route: 048
  2. CEPHALEXIN. [Suspect]
     Active Substance: CEPHALEXIN
     Indication: UPPER RESPIRATORY TRACT INFECTION
  3. CEPHALEXIN. [Suspect]
     Active Substance: CEPHALEXIN
     Indication: SINUSITIS
     Route: 048

REACTIONS (1)
  - Anaphylactic reaction [None]
